FAERS Safety Report 6913723-7 (Version None)
Quarter: 2010Q3

REPORT INFORMATION
  Report Type: 
  Country: None (occurrence: None)
  Receive Date: 20100809
  Receipt Date: 20100729
  Transmission Date: 20110219
  Serious: Yes (Hospitalization, Other)
  Sender: FDA-Public Use
  Company Number: JP-JNJFOC-20100800723

PATIENT
  Age: 69 Year
  Sex: Male

DRUGS (5)
  1. ORTHOCLONE OKT3 [Suspect]
     Indication: PRODUCT USED FOR UNKNOWN INDICATION
     Route: 042
  2. HYDROCORTISONE [Concomitant]
     Route: 065
  3. METHYLPREDNISOLONE [Concomitant]
     Route: 065
  4. NONSTEROIDAL ANTIINFLAMMATORY DRUGS [Concomitant]
     Route: 065
  5. ANTIHISTAMINES [Concomitant]
     Route: 065

REACTIONS (3)
  - ATRIAL FIBRILLATION [None]
  - HYPERTHERMIA [None]
  - INFLUENZA LIKE ILLNESS [None]
